FAERS Safety Report 9298548 (Version 2)
Quarter: 2013Q2

REPORT INFORMATION
  Report Type: Spontaneous
  Country: BR (occurrence: BR)
  Receive Date: 20130520
  Receipt Date: 20130520
  Transmission Date: 20140414
  Serious: Yes (Other)
  Sender: FDA-Public Use
  Company Number: BR-ASTRAZENECA-2012SE47172

PATIENT
  Age: 43 Year
  Sex: Female
  Weight: 70 kg

DRUGS (12)
  1. CRESTOR [Suspect]
     Indication: BLOOD CHOLESTEROL INCREASED
     Route: 048
     Dates: start: 2011, end: 201205
  2. CRESTOR [Suspect]
     Indication: BLOOD CHOLESTEROL INCREASED
     Route: 048
     Dates: start: 201205
  3. SELOZOK [Suspect]
     Indication: HYPERTENSION
     Route: 048
  4. LISTRIL [Suspect]
     Indication: HYPERTENSION
     Route: 048
     Dates: end: 2012
  5. LIPITOR [Concomitant]
     Dates: end: 2011
  6. METFORMIN [Concomitant]
     Dosage: GENERIC
  7. EUTHYROX [Concomitant]
     Indication: HYPOTHYROIDISM
     Route: 048
     Dates: start: 2001
  8. RIVOTRIL [Concomitant]
     Indication: PANIC DISORDER
     Route: 048
     Dates: start: 2011
  9. GLIFAGE [Concomitant]
     Indication: DIABETES MELLITUS
     Route: 048
     Dates: start: 2001
  10. OLCADIL [Concomitant]
     Dosage: TWO TIMES A DAY
     Route: 048
  11. COZAAR [Concomitant]
     Indication: HYPERTENSION
     Dosage: TWO TIMES A DAY
     Route: 048
     Dates: start: 2012
  12. NATRILIX [Concomitant]
     Indication: HYPERTENSION
     Route: 048
     Dates: start: 2012

REACTIONS (4)
  - Blood pressure increased [Recovered/Resolved]
  - Panic disorder [Recovered/Resolved]
  - Drug ineffective [Unknown]
  - Blood cholesterol increased [Unknown]
